FAERS Safety Report 8125853-5 (Version None)
Quarter: 2012Q1

REPORT INFORMATION
  Report Type: 
  Country: None (occurrence: None)
  Receive Date: 20120206
  Receipt Date: 20120124
  Transmission Date: 20120608
  Serious: No
  Sender: FDA-Public Use
  Company Number: 2012-00048

PATIENT
  Age: 21 Year
  Sex: Male
  Weight: 78.0187 kg

DRUGS (5)
  1. MELATONIN [Concomitant]
  2. ZICAM COLD REMEDY RAPID MELTS CITRUS [Suspect]
     Indication: NASOPHARYNGITIS
     Dosage: 1 RAPIDMELT ORALLY
     Route: 048
     Dates: start: 20120122, end: 20120124
  3. SIMVASTATIN [Concomitant]
  4. CONCERTA [Concomitant]
  5. AFRIN [Concomitant]

REACTIONS (1)
  - AGEUSIA [None]
